FAERS Safety Report 16311329 (Version 1)
Quarter: 2019Q2

REPORT INFORMATION
  Report Type: Spontaneous
  Country: US (occurrence: DE)
  Receive Date: 20190514
  Receipt Date: 20190514
  Transmission Date: 20190711
  Serious: Yes (Other)
  Sender: FDA-Public Use
  Company Number: US-SUNOVION-2019SUN001979

PATIENT

DRUGS (1)
  1. GLYCOPYRROLATE. [Suspect]
     Active Substance: GLYCOPYRROLATE
     Indication: EMPHYSEMA
     Dosage: UNK UNK, QD
     Route: 065
     Dates: start: 2015

REACTIONS (2)
  - Muscle atrophy [Unknown]
  - Motor neurone disease [Unknown]

NARRATIVE: CASE EVENT DATE: 201902
